FAERS Safety Report 5565861-1 (Version None)
Quarter: 2007Q4

REPORT INFORMATION
  Report Type: 
  Country: None (occurrence: None)
  Receive Date: 20071213
  Receipt Date: 20071128
  Transmission Date: 20080405
  Serious: Yes (Other)
  Sender: FDA-Public Use
  Company Number: 8028214

PATIENT
  Age: 36 Year
  Sex: Female

DRUGS (1)
  1. KEPPRA [Suspect]
     Indication: CEREBROVASCULAR ACCIDENT
     Dosage: 750 MG 2/D

REACTIONS (3)
  - DRUG EXPOSURE DURING PREGNANCY [None]
  - NAUSEA [None]
  - UNINTENDED PREGNANCY [None]
